FAERS Safety Report 5158406-1 (Version None)
Quarter: 2006Q4

REPORT INFORMATION
  Report Type: 
  Country: None (occurrence: None)
  Receive Date: 20061128
  Receipt Date: 20061113
  Transmission Date: 20070319
  Serious: Yes (Hospitalization, Other)
  Sender: FDA-Public Use
  Company Number: US-AMGEN-US200169

PATIENT
  Sex: Male

DRUGS (1)
  1. ENBREL [Suspect]
     Indication: PSORIASIS
     Dates: start: 20050315

REACTIONS (4)
  - CATHETERISATION CARDIAC [None]
  - ELECTROCARDIOGRAM ABNORMAL [None]
  - HIP ARTHROPLASTY [None]
  - JOINT DISLOCATION [None]
